FAERS Safety Report 5788483-6 (Version None)
Quarter: 2008Q2

REPORT INFORMATION
  Report Type: 
  Country: None (occurrence: None)
  Receive Date: 20080625
  Receipt Date: 20080625
  Transmission Date: 20081010
  Serious: Yes (Life-Threatening, Hospitalization, Other)
  Sender: FDA-Public Use
  Company Number: None

PATIENT
  Sex: Male
  Weight: 63.5036 kg

DRUGS (2)
  1. DIGITEK .125MG FILLED 01/30/08 MYLAN BERTEK [Suspect]
     Indication: CARDIAC DISORDER
     Dosage: 0.125MG 1/DAY
     Dates: start: 20070501, end: 20080501
  2. DIGITEK .125MG FILLED 04/14/08 MYLAN BERTEK [Suspect]
     Dosage: 15 YRS SINCE HEART ATTACK

REACTIONS (6)
  - BALANCE DISORDER [None]
  - DIZZINESS [None]
  - FATIGUE [None]
  - MEDICATION ERROR [None]
  - TREMOR [None]
  - VISION BLURRED [None]
